FAERS Safety Report 7457263-8 (Version None)
Quarter: 2011Q2

REPORT INFORMATION
  Report Type: 
  Country: None (occurrence: None)
  Receive Date: 20110504
  Receipt Date: 20110425
  Transmission Date: 20111010
  Serious: No
  Sender: FDA-Public Use
  Company Number: US-US-EMD SERONO, INC.-7047137

PATIENT
  Sex: Male

DRUGS (6)
  1. REBIF [Suspect]
     Route: 058
     Dates: start: 20110301
  2. MORPHINE [Concomitant]
     Indication: PAIN
  3. REBIF [Suspect]
     Indication: MULTIPLE SCLEROSIS
     Dates: start: 20090101
  4. REBIF [Suspect]
     Route: 058
  5. TRICOR [Concomitant]
     Indication: BLOOD TRIGLYCERIDES INCREASED
  6. ALLOPURINOL [Concomitant]
     Indication: GOUT

REACTIONS (7)
  - INCOHERENT [None]
  - MEMORY IMPAIRMENT [None]
  - INAPPROPRIATE SCHEDULE OF DRUG ADMINISTRATION [None]
  - HEADACHE [None]
  - FEELING DRUNK [None]
  - VOMITING [None]
  - FATIGUE [None]
